FAERS Safety Report 20439727 (Version 1)
Quarter: 2022Q1

REPORT INFORMATION
  Report Type: Spontaneous
  Country: CA (occurrence: None)
  Receive Date: 20220205
  Receipt Date: 20220205
  Transmission Date: 20220424
  Serious: Yes (Disabling)
  Sender: FDA-Public Use
  Company Number: None

PATIENT
  Age: 35 Year
  Sex: Female
  Weight: 62.1 kg

DRUGS (14)
  1. VENLAFAXINE [Suspect]
     Active Substance: VENLAFAXINE HYDROCHLORIDE
     Indication: Pain
     Dates: start: 20210904, end: 20220120
  2. VENLAFAXINE [Suspect]
     Active Substance: VENLAFAXINE HYDROCHLORIDE
     Indication: Depression
  3. VENLAFAXINE [Suspect]
     Active Substance: VENLAFAXINE HYDROCHLORIDE
     Indication: Anxiety
  4. ARIPIPRAZOLE [Concomitant]
     Active Substance: ARIPIPRAZOLE
  5. QUETIAPINE [Concomitant]
     Active Substance: QUETIAPINE
  6. MELATONIN [Concomitant]
     Active Substance: MELATONIN
  7. PRAZOSIN [Concomitant]
     Active Substance: PRAZOSIN
  8. VENLAFAXINE [Concomitant]
     Active Substance: VENLAFAXINE HYDROCHLORIDE
  9. S bourdai [Concomitant]
  10. NAC-SAP [Concomitant]
  11. VITAMIN D [Concomitant]
     Active Substance: VITAMIN D NOS
  12. OMEGA 3 [Concomitant]
     Active Substance: CAPSAICIN
  13. ZINC [Concomitant]
     Active Substance: ZINC
  14. IRON [Concomitant]
     Active Substance: IRON

REACTIONS (15)
  - Restlessness [None]
  - Dyspepsia [None]
  - Musculoskeletal stiffness [None]
  - Constipation [None]
  - Liver disorder [None]
  - Heart rate increased [None]
  - Sexual dysfunction [None]
  - Panic attack [None]
  - Depression [None]
  - Hypoaesthesia [None]
  - Dry mouth [None]
  - Lip dry [None]
  - Dyspepsia [None]
  - Pain [None]
  - Feeling abnormal [None]

NARRATIVE: CASE EVENT DATE: 20210904
